FAERS Safety Report 23850376 (Version 1)
Quarter: 2024Q2

REPORT INFORMATION
  Report Type: Spontaneous
  Country: US (occurrence: US)
  Receive Date: 20240513
  Receipt Date: 20240513
  Transmission Date: 20240716
  Serious: No
  Sender: FDA-Public Use
  Company Number: US-GE HEALTHCARE-2024CSU002615

PATIENT
  Sex: Female
  Weight: 90.703 kg

DRUGS (2)
  1. OPTISON [Suspect]
     Active Substance: HUMAN ALBUMIN MICROSPHERES\PERFLUTREN
     Indication: Diagnostic procedure
     Dosage: 3 ML, TOTAL
     Route: 042
     Dates: start: 20240313, end: 20240313
  2. SALINE [Concomitant]
     Active Substance: SODIUM CHLORIDE
     Dosage: UNK
     Route: 042
     Dates: start: 20240313, end: 20240313

REACTIONS (1)
  - Perineal pain [Recovered/Resolved]

NARRATIVE: CASE EVENT DATE: 20240313
